FAERS Safety Report 16029696 (Version 1)
Quarter: 2019Q2

REPORT INFORMATION
  Report Type: Spontaneous
  Country: US (occurrence: US)
  Receive Date: 20190303
  Receipt Date: 20190303
  Transmission Date: 20190711
  Serious: Yes (Disabling)
  Sender: FDA-Public Use
  Company Number: None

PATIENT
  Age: 40 Year
  Sex: Female
  Weight: 64.35 kg

DRUGS (11)
  1. LEMTRADA [Suspect]
     Active Substance: ALEMTUZUMAB
     Indication: MULTIPLE SCLEROSIS
     Dosage: ?          OTHER ROUTE:NONE?
  2. GABAPENTIN. [Concomitant]
     Active Substance: GABAPENTIN
  3. ZOFRAN [Concomitant]
     Active Substance: ONDANSETRON HYDROCHLORIDE
  4. RELPAX [Concomitant]
     Active Substance: ELETRIPTAN HYDROBROMIDE
  5. MULTIPLE VITAMIN [Concomitant]
     Active Substance: VITAMINS
  6. DEXILEXT [Concomitant]
  7. PRAMPEXOLE [Concomitant]
  8. CELEXA [Concomitant]
     Active Substance: CITALOPRAM HYDROBROMIDE
  9. TOPAMAX [Concomitant]
     Active Substance: TOPIRAMATE
  10. VITAMIN D NOS [Concomitant]
     Active Substance: VITAMIN D NOS
  11. AMPYRA [Concomitant]
     Active Substance: DALFAMPRIDINE

REACTIONS (1)
  - Basedow^s disease [None]

NARRATIVE: CASE EVENT DATE: 20190301
